FAERS Safety Report 5420412-7 (Version None)
Quarter: 2007Q3

REPORT INFORMATION
  Report Type: 
  Country: None (occurrence: None)
  Receive Date: 20070816
  Receipt Date: 20070809
  Transmission Date: 20080115
  Serious: Yes (Other)
  Sender: FDA-Public Use
  Company Number: E2090-00293-SPO-US

PATIENT
  Age: 57 Year
  Sex: Male

DRUGS (4)
  1. ZONEGRAN [Suspect]
     Indication: EPILEPSY
     Dosage: 600 MG, ORAL
     Route: 048
     Dates: start: 20010101, end: 20020101
  2. DILANTIN KAPSEAL [Concomitant]
  3. LAMICTAL [Concomitant]
  4. KEPPRA [Concomitant]

REACTIONS (4)
  - CLEAR CELL CARCINOMA OF THE KIDNEY [None]
  - NEPHROLITHIASIS [None]
  - PROSTATE CANCER [None]
  - PULMONARY CALCIFICATION [None]
